FAERS Safety Report 5728767-0 (Version None)
Quarter: 2008Q2

REPORT INFORMATION
  Report Type: 
  Country: None (occurrence: None)
  Receive Date: 20080506
  Receipt Date: 20080505
  Transmission Date: 20081010
  Serious: Yes (Hospitalization)
  Sender: FDA-Public Use
  Company Number: B0518789A

PATIENT
  Sex: Female

DRUGS (1)
  1. ZENTEL [Suspect]
     Indication: DRUG USE FOR UNKNOWN INDICATION

REACTIONS (3)
  - ACUTE HEPATIC FAILURE [None]
  - GLUCOSE TOLERANCE IMPAIRED [None]
  - HEPATIC FUNCTION ABNORMAL [None]
